FAERS Safety Report 19625453 (Version 2)
Quarter: 2022Q4

REPORT INFORMATION
  Report Type: Report from Study
  Country: ES (occurrence: ES)
  Receive Date: 20210728
  Receipt Date: 20221116
  Transmission Date: 20230112
  Serious: Yes (Congenital Anomaly)
  Sender: FDA-Public Use
  Company Number: ES-TAKEDA-2021TUS044412

PATIENT
  Age: 9 Year
  Sex: Male

DRUGS (11)
  1. TEDUGLUTIDE [Suspect]
     Active Substance: TEDUGLUTIDE
     Indication: Short-bowel syndrome
     Dosage: 1.2 MILLIGRAM, QD
     Route: 042
     Dates: start: 20190827, end: 20191211
  2. TEDUGLUTIDE [Suspect]
     Active Substance: TEDUGLUTIDE
     Indication: Short-bowel syndrome
     Dosage: 1.2 MILLIGRAM, QD
     Route: 042
     Dates: start: 20190827, end: 20191211
  3. TEDUGLUTIDE [Suspect]
     Active Substance: TEDUGLUTIDE
     Indication: Short-bowel syndrome
     Dosage: 1.2 MILLIGRAM, QD
     Route: 042
     Dates: start: 20190827, end: 20191211
  4. TEDUGLUTIDE [Suspect]
     Active Substance: TEDUGLUTIDE
     Indication: Short-bowel syndrome
     Dosage: 1.2 MILLIGRAM, QD
     Route: 042
     Dates: start: 20190827, end: 20191211
  5. NITROUS OXIDE [Concomitant]
     Active Substance: NITROUS OXIDE
     Indication: Sedative therapy
     Dosage: 4 LITER
     Route: 055
     Dates: start: 20201113, end: 20201113
  6. NITROUS OXIDE [Concomitant]
     Active Substance: NITROUS OXIDE
     Dosage: UNK
     Route: 055
     Dates: start: 20201112, end: 20201112
  7. NITROUS OXIDE [Concomitant]
     Active Substance: NITROUS OXIDE
     Dosage: UNK
     Route: 055
     Dates: start: 20200411, end: 20200411
  8. NITROUS OXIDE [Concomitant]
     Active Substance: NITROUS OXIDE
     Dosage: UNK
     Route: 055
     Dates: start: 20200112, end: 20200112
  9. NITROUS OXIDE [Concomitant]
     Active Substance: NITROUS OXIDE
     Dosage: UNK
     Route: 055
     Dates: start: 20220315, end: 20220315
  10. NITROUS OXIDE [Concomitant]
     Active Substance: NITROUS OXIDE
     Dosage: 6 LITER
     Route: 055
     Dates: start: 20220311, end: 20220311
  11. METRONIDAZOLE [Concomitant]
     Active Substance: METRONIDAZOLE
     Indication: Aerophagia
     Dosage: UNK
     Route: 048
     Dates: start: 202108, end: 202109

REACTIONS (2)
  - Neurofibromatosis [Recovered/Resolved]
  - Abdominal pain [Not Recovered/Not Resolved]

NARRATIVE: CASE EVENT DATE: 20210329
